FAERS Safety Report 21557072 (Version 2)
Quarter: 2022Q4

REPORT INFORMATION
  Report Type: Spontaneous
  Country: TW (occurrence: TW)
  Receive Date: 20221104
  Receipt Date: 20221111
  Transmission Date: 20230113
  Serious: Yes (Hospitalization, Other)
  Sender: FDA-Public Use
  Company Number: TW-GILEAD-2022-0603930

PATIENT
  Age: 61 Year
  Sex: Female

DRUGS (1)
  1. VEMLIDY [Suspect]
     Active Substance: TENOFOVIR ALAFENAMIDE FUMARATE
     Indication: Hepatitis B
     Dosage: 25 MG
     Route: 048
     Dates: start: 20221015

REACTIONS (6)
  - Coma [Unknown]
  - Coma [Unknown]
  - Jaundice [Unknown]
  - Hepatitis B [Unknown]
  - Blood lactic acid increased [Unknown]
  - Hepatic failure [Unknown]

NARRATIVE: CASE EVENT DATE: 20221001
